FAERS Safety Report 23178823 (Version 1)
Quarter: 2023Q4

REPORT INFORMATION
  Report Type: Spontaneous
  Country: US (occurrence: US)
  Receive Date: 20231113
  Receipt Date: 20231113
  Transmission Date: 20240110
  Serious: No
  Sender: FDA-Public Use
  Company Number: US-FreseniusKabi-FK202318072

PATIENT
  Sex: Female
  Weight: 78.5 kg

DRUGS (1)
  1. SENSORCAINE MPF [Suspect]
     Active Substance: BUPIVACAINE HYDROCHLORIDE
     Indication: Hip arthroplasty
     Dosage: ROUTE OF ADMIN.- SPINAL INTRATHECAL?15 MG INTRATHECAL ONE TIME DOSE

REACTIONS (2)
  - Therapeutic product effect decreased [Unknown]
  - Off label use [Unknown]
